FAERS Safety Report 5061254-4 (Version None)
Quarter: 2006Q3

REPORT INFORMATION
  Report Type: 
  Country: None (occurrence: None)
  Receive Date: 20060720
  Receipt Date: 20060707
  Transmission Date: 20061208
  Serious: Yes (Other)
  Sender: FDA-Public Use
  Company Number: 2006084017

PATIENT
  Age: 82 Year
  Sex: Female

DRUGS (6)
  1. XALATAN [Suspect]
     Indication: DRUG USE FOR UNKNOWN INDICATION
     Dosage: INTRAOCULAR
     Route: 031
     Dates: start: 20060121, end: 20060620
  2. CAPOTEN [Concomitant]
  3. SALURES-K (BENDROFLUMENTHIAZIDE, POTASSIUM CHLORIDE) [Concomitant]
  4. LASIC RETARD (FUROSEMIDE) [Concomitant]
  5. TIMOSAN (TIMOLOL MALEATE) [Concomitant]
  6. NAPROSYN [Concomitant]

REACTIONS (1)
  - BLOOD PRESSURE INCREASED [None]
